FAERS Safety Report 10039684 (Version 2)
Quarter: 2014Q2

REPORT INFORMATION
  Report Type: Spontaneous
  Country: BR (occurrence: BR)
  Receive Date: 20140326
  Receipt Date: 20140407
  Transmission Date: 20141212
  Serious: Yes (Life-Threatening, Hospitalization, Other)
  Sender: FDA-Public Use
  Company Number: BR-JNJFOC-20140309752

PATIENT
  Age: 42 Year
  Sex: Male
  Weight: 110 kg

DRUGS (4)
  1. ZYTIGA [Suspect]
     Indication: PROSTATE CANCER
     Route: 048
     Dates: start: 20131224, end: 201402
  2. ZYTIGA [Suspect]
     Indication: PROSTATE CANCER
     Route: 048
     Dates: start: 201309, end: 201310
  3. PREDNISONE [Concomitant]
     Route: 065
  4. GABAPENTIN [Concomitant]
     Route: 065
     Dates: start: 201304

REACTIONS (5)
  - Blood glucose decreased [Recovered/Resolved]
  - Loss of consciousness [Unknown]
  - Cancer pain [Not Recovered/Not Resolved]
  - Blood potassium decreased [Unknown]
  - Dysgeusia [Unknown]
